FAERS Safety Report 21621345 (Version 1)
Quarter: 2022Q4

REPORT INFORMATION
  Report Type: Spontaneous
  Country: US (occurrence: US)
  Receive Date: 20221121
  Receipt Date: 20221121
  Transmission Date: 20230113
  Serious: No
  Sender: FDA-Public Use
  Company Number: US-BRISTOL-MYERS SQUIBB COMPANY-2022-140463

PATIENT
  Age: 79 Year
  Sex: Female

DRUGS (2)
  1. REVLIMID [Suspect]
     Active Substance: LENALIDOMIDE
     Indication: Plasma cell myeloma
     Route: 048
     Dates: start: 20221005
  2. REVLIMID [Suspect]
     Active Substance: LENALIDOMIDE
     Indication: Osteoporosis
     Route: 065

REACTIONS (2)
  - Rash [Not Recovered/Not Resolved]
  - Pruritus [Unknown]
